FAERS Safety Report 8859566 (Version 3)
Quarter: 2012Q4

REPORT INFORMATION
  Report Type: 
  Country: IT (occurrence: IT)
  Receive Date: 20121025
  Receipt Date: 20121207
  Transmission Date: 20130627
  Serious: Yes (Other)
  Sender: FDA-Public Use
  Company Number: IT-JNJFOC-20121011590

PATIENT
  Age: 51 Year
  Sex: Female

DRUGS (4)
  1. TOPAMAX [Suspect]
     Indication: MOOD ALTERED
     Dosage: unknown dosage of 50 mg
     Route: 048
     Dates: start: 20121016, end: 20121016
  2. TOPAMAX [Suspect]
     Indication: MOOD ALTERED
     Route: 048
     Dates: start: 20120701, end: 20121015
  3. EUTIROX [Suspect]
     Indication: GOITRE
     Route: 048
     Dates: start: 20120701, end: 20121015
  4. EUTIROX [Suspect]
     Indication: GOITRE
     Route: 048
     Dates: start: 20121016, end: 20121016

REACTIONS (1)
  - Self injurious behaviour [Recovered/Resolved]
